FAERS Safety Report 4652016-8 (Version None)
Quarter: 2005Q2

REPORT INFORMATION
  Report Type: 
  Country: None (occurrence: None)
  Receive Date: 20050504
  Receipt Date: 20041004
  Transmission Date: 20051028
  Serious: Yes (Other)
  Sender: FDA-Public Use
  Company Number: US-2004-BP-09134BP

PATIENT
  Sex: Female

DRUGS (7)
  1. MOBIC [Suspect]
     Indication: OSTEOARTHRITIS
     Route: 048
     Dates: start: 20030101
  2. 5-FLUOUROURACIL [Concomitant]
     Indication: BREAST CANCER
  3. CYCLOPHOSOMIDE [Concomitant]
     Indication: BREAST CANCER
  4. METHOTREXATE [Concomitant]
     Indication: BREAST CANCER
  5. ZOFRAN [Concomitant]
     Indication: ANTIEMETIC SUPPORTIVE CARE
  6. XANAX [Concomitant]
     Indication: ANXIETY
  7. DECADRON [Concomitant]

REACTIONS (2)
  - ATRIAL FIBRILLATION [None]
  - BREAST CANCER [None]
